FAERS Safety Report 5334317-3 (Version None)
Quarter: 2007Q2

REPORT INFORMATION
  Report Type: 
  Country: None (occurrence: None)
  Receive Date: 20070525
  Receipt Date: 20070516
  Transmission Date: 20071010
  Serious: Yes (Hospitalization, Other)
  Sender: FDA-Public Use
  Company Number: PHEH2007US02040

PATIENT
  Age: 50 Year
  Sex: Female

DRUGS (8)
  1. ZOMETA [Suspect]
     Indication: METASTASES TO BONE
     Dosage: 4 MG, UNK
     Dates: start: 20060505, end: 20070123
  2. GEMZAR [Suspect]
     Indication: BREAST CANCER
     Dosage: 800 MG/M2 ON DAY 1,8  AND 15 Q28 DAYS
     Dates: start: 20060908, end: 20070123
  3. ANTIHYPERTENSIVES [Concomitant]
  4. DARBEPOETIN ALFA [Concomitant]
  5. ANASTROZOLE [Concomitant]
  6. PALONOSETRON [Concomitant]
  7. DEXAMETHASONE SODIUM PHOSPHATE [Concomitant]
  8. GOSERELIN [Concomitant]

REACTIONS (45)
  - ANXIETY [None]
  - ASTHENIA [None]
  - BACK PAIN [None]
  - BIOPSY KIDNEY ABNORMAL [None]
  - BLOOD ALBUMIN DECREASED [None]
  - BLOOD CALCIUM INCREASED [None]
  - BLOOD CHLORIDE DECREASED [None]
  - BLOOD CREATININE INCREASED [None]
  - BLOOD GLUCOSE INCREASED [None]
  - BLOOD LACTATE DEHYDROGENASE INCREASED [None]
  - BLOOD POTASSIUM DECREASED [None]
  - BLOOD PRESSURE INCREASED [None]
  - BLOOD UREA INCREASED [None]
  - CARBOHYDRATE ANTIGEN 27.29 INCREASED [None]
  - CARBON DIOXIDE INCREASED [None]
  - CARDIAC TAMPONADE [None]
  - CHOLELITHIASIS [None]
  - COUGH [None]
  - CREATININE RENAL CLEARANCE DECREASED [None]
  - DECREASED APPETITE [None]
  - DEPRESSION [None]
  - DYSPNOEA [None]
  - FEELING ABNORMAL [None]
  - FLUID OVERLOAD [None]
  - HAEMATOCRIT DECREASED [None]
  - HAEMOGLOBIN DECREASED [None]
  - HEADACHE [None]
  - HYPOTENSION [None]
  - MITRAL VALVE INCOMPETENCE [None]
  - NAUSEA [None]
  - OEDEMA [None]
  - OLIGURIA [None]
  - PERICARDIAL EFFUSION [None]
  - PERICARDIAL RUB [None]
  - PLATELET COUNT DECREASED [None]
  - PLEURAL EFFUSION [None]
  - PYREXIA [None]
  - RENAL FAILURE [None]
  - RENAL TUBULAR NECROSIS [None]
  - RIGHT VENTRICULAR FAILURE [None]
  - TACHYCARDIA [None]
  - THORACOTOMY [None]
  - THROMBOTIC THROMBOCYTOPENIC PURPURA [None]
  - TRICUSPID VALVE INCOMPETENCE [None]
  - VOMITING [None]
